FAERS Safety Report 20479887 (Version 1)
Quarter: 2022Q1

REPORT INFORMATION
  Report Type: Spontaneous
  Country: US (occurrence: US)
  Receive Date: 20220216
  Receipt Date: 20220216
  Transmission Date: 20220423
  Serious: Yes (Hospitalization)
  Sender: FDA-Public Use
  Company Number: US-MYLANLABS-2022M1012488

PATIENT
  Age: 58 Year
  Sex: Female

DRUGS (1)
  1. DEXAMETHASONE [Suspect]
     Active Substance: DEXAMETHASONE
     Indication: Immunosuppressant drug therapy
     Dosage: UNK
     Route: 065

REACTIONS (7)
  - Aspergilloma [Unknown]
  - Mitral valve disease [Unknown]
  - Cerebral haemorrhage [Unknown]
  - Cerebral artery occlusion [Unknown]
  - Hemiplegia [Unknown]
  - Peripheral artery occlusion [Unknown]
  - Blindness [Unknown]
